FAERS Safety Report 5400815-7 (Version None)
Quarter: 2007Q3

REPORT INFORMATION
  Report Type: 
  Country: None (occurrence: None)
  Receive Date: 20070730
  Receipt Date: 20070720
  Transmission Date: 20080115
  Serious: Yes (Other)
  Sender: FDA-Public Use
  Company Number: US-SHR-US-2007-027244

PATIENT
  Sex: Male

DRUGS (1)
  1. LEUKINE [Suspect]
     Indication: PROSTATE CANCER
     Dosage: 250 MCG/M2/D, DAYS 1-14Q21DAYS
     Route: 058

REACTIONS (1)
  - PULMONARY EMBOLISM [None]
